FAERS Safety Report 4549509-0 (Version None)
Quarter: 2005Q1

REPORT INFORMATION
  Report Type: 
  Country: None (occurrence: None)
  Receive Date: 20050106
  Receipt Date: 20041221
  Transmission Date: 20050727
  Serious: Yes (Other)
  Sender: FDA-Public Use
  Company Number: DSA_25524-2004

PATIENT
  Age: 70 Year
  Sex: Female

DRUGS (1)
  1. TEVETEN [Suspect]
     Indication: HYPERTENSION
     Dosage: 600 MG Q DAY PO
     Route: 048

REACTIONS (3)
  - DERMATITIS ALLERGIC [None]
  - DRUG INEFFECTIVE [None]
  - PHOTOSENSITIVITY ALLERGIC REACTION [None]
